FAERS Safety Report 14797900 (Version 1)
Quarter: 2018Q2

REPORT INFORMATION
  Report Type: Spontaneous
  Country: US (occurrence: US)
  Receive Date: 20180424
  Receipt Date: 20180424
  Transmission Date: 20180711
  Serious: Yes (Hospitalization, Other)
  Sender: FDA-Public Use
  Company Number: US-BIOGEN-2018BI00558732

PATIENT
  Age: 43 Year
  Sex: Female

DRUGS (3)
  1. MITOXANTRONE [Concomitant]
     Active Substance: MITOXANTRONE HYDROCHLORIDE
     Indication: PRODUCT USED FOR UNKNOWN INDICATION
     Dosage: A TOTAL OF SIX TREATMENTS WITH A CUMULATIVE DOSE OF 120 MG.
     Route: 065
     Dates: start: 200104, end: 200208
  2. METHOTREXATE. [Concomitant]
     Active Substance: METHOTREXATE
     Indication: PROGRESSIVE MULTIPLE SCLEROSIS
     Route: 037
     Dates: start: 200304
  3. AVONEX [Suspect]
     Active Substance: INTERFERON BETA-1A
     Indication: MULTIPLE SCLEROSIS
     Route: 065

REACTIONS (3)
  - Mucosal inflammation [Unknown]
  - Acute promyelocytic leukaemia [Recovered/Resolved]
  - Pseudomonal sepsis [Unknown]

NARRATIVE: CASE EVENT DATE: 200306
